FAERS Safety Report 8778675 (Version 1)
Quarter: 2012Q4

REPORT INFORMATION
  Report Type: Report from Study
  Country: CA (occurrence: CA)
  Receive Date: 20120912
  Receipt Date: 20120912
  Transmission Date: 20130627
  Serious: Yes (Other)
  Sender: FDA-Public Use
  Company Number: CA-ROCHE-1120166

PATIENT
  Age: 53 Year

DRUGS (4)
  1. AVASTIN [Suspect]
     Indication: COLORECTAL CANCER
     Route: 065
     Dates: start: 20110804, end: 20120605
  2. FOLINIC ACID [Suspect]
     Indication: COLORECTAL CANCER
     Route: 065
     Dates: start: 20110804, end: 20120605
  3. FLUOROURACIL [Suspect]
     Indication: COLORECTAL CANCER
     Route: 065
     Dates: start: 20110804, end: 20120605
  4. IRINOTECAN [Suspect]
     Indication: COLORECTAL CANCER
     Route: 065
     Dates: start: 20110804, end: 20120605

REACTIONS (1)
  - Disease progression [Unknown]
